FAERS Safety Report 23499531 (Version 1)
Quarter: 2024Q1

REPORT INFORMATION
  Report Type: Spontaneous
  Country: BE (occurrence: BE)
  Receive Date: 20240208
  Receipt Date: 20240208
  Transmission Date: 20240409
  Serious: Yes (Other)
  Sender: FDA-Public Use
  Company Number: BE-CELLTRION INC.-2024BE002534

PATIENT

DRUGS (8)
  1. ADALIMUMAB [Suspect]
     Active Substance: ADALIMUMAB\ISOPROPYL ALCOHOL
     Indication: Crohn^s disease
     Dosage: UNK
     Route: 058
     Dates: start: 201608
  2. ADALIMUMAB [Suspect]
     Active Substance: ADALIMUMAB\ISOPROPYL ALCOHOL
     Dosage: UNK, EVERY 1 WEEK
     Route: 058
     Dates: start: 201807
  3. RISANKIZUMAB [Suspect]
     Active Substance: RISANKIZUMAB
     Indication: Crohn^s disease
     Dosage: 1200 MG
     Route: 058
     Dates: start: 202005
  4. RISANKIZUMAB [Suspect]
     Active Substance: RISANKIZUMAB
     Dosage: EVERY 8 WEEKS
     Route: 058
  5. RISANKIZUMAB [Suspect]
     Active Substance: RISANKIZUMAB
     Dosage: 360 MG, EVERY 8 WEEKS
     Route: 058
     Dates: start: 202005
  6. RISANKIZUMAB [Suspect]
     Active Substance: RISANKIZUMAB
     Dosage: 600 MG
     Route: 058
     Dates: start: 201911
  7. BUDESONIDE [Concomitant]
     Active Substance: BUDESONIDE
     Indication: Steroid therapy
  8. CHOLESTYRAMINE [Concomitant]
     Active Substance: CHOLESTYRAMINE
     Indication: Product used for unknown indication
     Dosage: 6 G, EVERY 1 DAY
     Route: 065

REACTIONS (21)
  - Ileocaecal resection [Unknown]
  - Crohn^s disease [Unknown]
  - Crohn^s disease [Unknown]
  - Rectal tenesmus [Unknown]
  - Coombs direct test positive [Unknown]
  - Lymphadenopathy [Unknown]
  - Unevaluable event [Unknown]
  - Granuloma [Unknown]
  - Mucosal inflammation [Unknown]
  - Frequent bowel movements [Unknown]
  - Unevaluable event [Unknown]
  - Gastrointestinal wall thickening [Unknown]
  - Mucosal ulceration [Unknown]
  - Anal erosion [Unknown]
  - Micturition urgency [Unknown]
  - Drug intolerance [Unknown]
  - Abdominal pain lower [Unknown]
  - Abdominal pain [Recovered/Resolved]
  - Therapeutic product effect incomplete [Unknown]
  - Drug ineffective [Not Recovered/Not Resolved]
  - Off label use [Unknown]

NARRATIVE: CASE EVENT DATE: 20191101
